FAERS Safety Report 15549562 (Version 1)
Quarter: 2018Q4

REPORT INFORMATION
  Report Type: Spontaneous
  Country: US (occurrence: US)
  Receive Date: 20181024
  Receipt Date: 20181024
  Transmission Date: 20190205
  Serious: Yes (Other)
  Sender: FDA-Public Use
  Company Number: None

PATIENT
  Age: 52 Year
  Sex: Female
  Weight: 75.15 kg

DRUGS (13)
  1. FLORADIX IRON [Concomitant]
  2. CITRA-CAL [Concomitant]
  3. ZONISAMIDE. [Concomitant]
     Active Substance: ZONISAMIDE
  4. ZINC. [Concomitant]
     Active Substance: ZINC
  5. AIMOVIG [Suspect]
     Active Substance: ERENUMAB-AOOE
     Indication: HEADACHE
     Dosage: ?          QUANTITY:1 INJECTION(S);OTHER FREQUENCY:ONCE A MONTH;?
     Route: 058
     Dates: start: 20180714, end: 20181010
  6. MAGNESIUM OXIDE. [Concomitant]
     Active Substance: MAGNESIUM OXIDE
  7. IBUPROFEN. [Concomitant]
     Active Substance: IBUPROFEN
  8. OXYBUTYNIN CHL [Concomitant]
  9. LEVOTHYROXIN [Concomitant]
     Active Substance: LEVOTHYROXINE
  10. MAXALT [Concomitant]
     Active Substance: RIZATRIPTAN BENZOATE
  11. D [Concomitant]
  12. ESCITALOPRAM [Concomitant]
     Active Substance: ESCITALOPRAM OXALATE
  13. LUPRON [Concomitant]
     Active Substance: LEUPROLIDE ACETATE

REACTIONS (1)
  - Migraine [None]

NARRATIVE: CASE EVENT DATE: 20181010
